FAERS Safety Report 9104784 (Version 1)
Quarter: 2013Q1

REPORT INFORMATION
  Report Type: Spontaneous
  Country: FR (occurrence: FR)
  Receive Date: 20130220
  Receipt Date: 20130220
  Transmission Date: 20140127
  Serious: Yes (Other)
  Sender: FDA-Public Use
  Company Number: FR-ROCHE-1191311

PATIENT
  Age: 43 Year
  Sex: Male

DRUGS (10)
  1. ROCEPHINE [Suspect]
     Indication: PRODUCT USED FOR UNKNOWN INDICATION
     Route: 042
     Dates: start: 20121128, end: 20121128
  2. DOLIPRANE [Concomitant]
     Route: 065
  3. IXPRIM [Concomitant]
     Route: 065
  4. KARDEGIC [Concomitant]
  5. LAROXYL [Concomitant]
     Route: 065
  6. SMECTA [Concomitant]
     Route: 065
  7. FRAGMINE [Concomitant]
     Route: 065
  8. GABAPENTIN [Concomitant]
  9. VANCOMYCIN [Concomitant]
  10. GENTAMICINE [Concomitant]

REACTIONS (5)
  - Anaphylactoid shock [Recovered/Resolved]
  - Loss of consciousness [Recovered/Resolved]
  - Hypotension [Recovered/Resolved]
  - Paraesthesia [Recovered/Resolved]
  - Face oedema [Recovered/Resolved]
